FAERS Safety Report 11587919 (Version 2)
Quarter: 2015Q4

REPORT INFORMATION
  Report Type: Spontaneous
  Country: US (occurrence: US)
  Receive Date: 20151001
  Receipt Date: 20151001
  Transmission Date: 20160304
  Serious: No
  Sender: FDA-Public Use
  Company Number: US-APOTEX-2015AP009992

PATIENT

DRUGS (1)
  1. FENTANYL TRANSDERMAL SYSTEM [Suspect]
     Active Substance: FENTANYL
     Indication: PRODUCT USED FOR UNKNOWN INDICATION
     Dosage: 75 ?G, UNK
     Route: 065

REACTIONS (8)
  - Product substitution issue [Unknown]
  - Fear of death [Unknown]
  - Headache [Unknown]
  - Dyspnoea [Unknown]
  - Tremor [Unknown]
  - Choking sensation [Unknown]
  - Application site erythema [Unknown]
  - Dizziness [Unknown]
